FAERS Safety Report 4370662-6 (Version None)
Quarter: 2004Q2

REPORT INFORMATION
  Report Type: 
  Country: None (occurrence: None)
  Receive Date: 20040526
  Receipt Date: 20040513
  Transmission Date: 20050107
  Serious: Yes (Death, Life-Threatening, Hospitalization)
  Sender: FDA-Public Use
  Company Number: HQWYE880013MAY04

PATIENT
  Age: 18 Month
  Sex: Female

DRUGS (2)
  1. CHILDREN'S ADVIL [Suspect]
     Indication: PYREXIA
     Route: 048
     Dates: start: 20040424, end: 20040427
  2. ACETAMINOPHEN [Suspect]
     Indication: PYREXIA
     Route: 054
     Dates: start: 20040424, end: 20040427

REACTIONS (9)
  - CARDIAC ARREST [None]
  - CARDIAC FIBRILLATION [None]
  - DISSEMINATED INTRAVASCULAR COAGULATION [None]
  - HEPATIC FAILURE [None]
  - HYPERTHERMIA [None]
  - MUSCLE NECROSIS [None]
  - MUSCLE RIGIDITY [None]
  - PURPURA [None]
  - SHOCK [None]
